FAERS Safety Report 13636717 (Version 1)
Quarter: 2017Q2

REPORT INFORMATION
  Report Type: Spontaneous
  Country: US (occurrence: US)
  Receive Date: 20170531
  Receipt Date: 20170531
  Transmission Date: 20170830
  Serious: No
  Sender: FDA-Public Use
  Company Number: US-ASTELLAS-1845229

PATIENT
  Sex: Male

DRUGS (3)
  1. TARCEVA [Suspect]
     Active Substance: ERLOTINIB HYDROCHLORIDE
     Indication: PANCREATIC CARCINOMA
     Route: 048
     Dates: start: 20160928
  2. LOVENOX [Concomitant]
     Active Substance: ENOXAPARIN SODIUM
  3. LASIX [Concomitant]
     Active Substance: FUROSEMIDE

REACTIONS (2)
  - Wrong technique in product usage process [Unknown]
  - No adverse event [Unknown]
